FAERS Safety Report 4447106-9 (Version None)
Quarter: 2004Q3

REPORT INFORMATION
  Report Type: 
  Country: None (occurrence: None)
  Receive Date: 20040903
  Receipt Date: 20040903
  Transmission Date: 20050211
  Serious: Yes (Other)
  Sender: FDA-Public Use
  Company Number: None

PATIENT

DRUGS (3)
  1. ALBUTEROL [Suspect]
     Indication: RESPIRATORY FAILURE
     Dosage: QID AND PRN
  2. IPRATROPIUM BROMIDE [Suspect]
     Indication: CHRONIC OBSTRUCTIVE AIRWAYS DISEASE
     Dosage: QID
  3. IPRATROPIUM BROMIDE [Suspect]
     Indication: PNEUMONIA
     Dosage: QID

REACTIONS (1)
  - MEDICATION ERROR [None]
